FAERS Safety Report 17436961 (Version 1)
Quarter: 2020Q1

REPORT INFORMATION
  Report Type: Spontaneous
  Country: FR (occurrence: FR)
  Receive Date: 20200219
  Receipt Date: 20200219
  Transmission Date: 20200409
  Serious: Yes (Other)
  Sender: FDA-Public Use
  Company Number: FR-SA-2020SA040428

PATIENT
  Age: 69 Year
  Sex: Female

DRUGS (3)
  1. IBRANCE [Concomitant]
     Active Substance: PALBOCICLIB
     Route: 048
  2. LOVENOX [Suspect]
     Active Substance: ENOXAPARIN SODIUM
     Indication: THROMBOSIS PROPHYLAXIS
     Dosage: UNK
     Route: 058
     Dates: start: 2017, end: 2019
  3. FULVESTRANT. [Concomitant]
     Active Substance: FULVESTRANT
     Route: 030

REACTIONS (1)
  - Neutropenia [Recovered/Resolved]

NARRATIVE: CASE EVENT DATE: 2019
